FAERS Safety Report 12921491 (Version 1)
Quarter: 2016Q4

REPORT INFORMATION
  Report Type: Spontaneous
  Country: BR (occurrence: BR)
  Receive Date: 20161108
  Receipt Date: 20161108
  Transmission Date: 20170207
  Serious: Yes (Hospitalization, Other)
  Sender: FDA-Public Use
  Company Number: BR-PFIZER INC-2016509415

PATIENT
  Age: 54 Year
  Sex: Male

DRUGS (1)
  1. SUTENT [Suspect]
     Active Substance: SUNITINIB MALATE
     Dosage: 50 MG, UNK
     Dates: start: 20161003

REACTIONS (6)
  - Diarrhoea [Unknown]
  - Gingival bleeding [Unknown]
  - Blood urea increased [Unknown]
  - Mouth haemorrhage [Unknown]
  - Dehydration [Unknown]
  - Wound [Unknown]
